FAERS Safety Report 7955578-8 (Version None)
Quarter: 2011Q4

REPORT INFORMATION
  Report Type: 
  Country: None (occurrence: None)
  Receive Date: 20111202
  Receipt Date: 20111125
  Transmission Date: 20120403
  Serious: Yes (Other)
  Sender: FDA-Public Use
  Company Number: FR-ASTRAZENECA-2011SE72055

PATIENT
  Age: 44 Year
  Sex: Female

DRUGS (5)
  1. ACETAMINOPHEN [Concomitant]
  2. QUETIAPINE FUMARATE [Suspect]
     Route: 048
     Dates: start: 20111120
  3. QUETIAPINE FUMARATE [Suspect]
     Route: 048
     Dates: start: 20111116, end: 20111116
  4. QUETIAPINE FUMARATE [Suspect]
     Indication: BIPOLAR DISORDER
     Route: 048
     Dates: start: 20111115, end: 20111115
  5. ESCITALOPRAM OXALATE [Concomitant]

REACTIONS (6)
  - TOOTHACHE [None]
  - SPEECH DISORDER [None]
  - FLATULENCE [None]
  - CONSTIPATION [None]
  - VISUAL IMPAIRMENT [None]
  - SWOLLEN TONGUE [None]
